FAERS Safety Report 6851006-4 (Version None)
Quarter: 2010Q3

REPORT INFORMATION
  Report Type: 
  Country: None (occurrence: None)
  Receive Date: 20100716
  Receipt Date: 20071024
  Transmission Date: 20110219
  Serious: No
  Sender: FDA-Public Use
  Company Number: US-PFIZER INC-2007090941

PATIENT
  Sex: Female
  Weight: 56.8 kg

DRUGS (3)
  1. CHANTIX [Suspect]
     Indication: SMOKING CESSATION THERAPY
     Dates: start: 20071021
  2. ALPRAZOLAM [Concomitant]
     Indication: ANXIETY
  3. HYDROCODONE [Concomitant]
     Indication: BACK PAIN

REACTIONS (4)
  - DYSPNOEA [None]
  - RESPIRATORY DISORDER [None]
  - SUFFOCATION FEELING [None]
  - WHEEZING [None]
